FAERS Safety Report 7331101-6 (Version None)
Quarter: 2011Q1

REPORT INFORMATION
  Report Type: 
  Country: None (occurrence: None)
  Receive Date: 20110304
  Receipt Date: 20110223
  Transmission Date: 20110831
  Serious: Yes (Other)
  Sender: FDA-Public Use
  Company Number: US-ENDO PHARMACEUTICALS INC.-HCTZ20110002

PATIENT
  Age: 55 Year
  Sex: Female

DRUGS (3)
  1. LEXAPRO [Suspect]
     Indication: DEPRESSION
     Route: 048
     Dates: start: 20110201, end: 20110202
  2. HYDROCHLOROTHIAZIDE [Suspect]
     Indication: OEDEMA
     Dosage: UNK
     Route: 048
  3. LEXAPRO [Suspect]
     Indication: ANXIETY

REACTIONS (2)
  - HYPONATRAEMIA [None]
  - GRAND MAL CONVULSION [None]
